FAERS Safety Report 7837678-6 (Version None)
Quarter: 2011Q4

REPORT INFORMATION
  Report Type: 
  Country: None (occurrence: None)
  Receive Date: 20111024
  Receipt Date: 20111017
  Transmission Date: 20120403
  Serious: Yes (Hospitalization)
  Sender: FDA-Public Use
  Company Number: PHHY2011MX92555

PATIENT
  Sex: Female

DRUGS (5)
  1. INSULINE [Concomitant]
     Dosage: 16 IU, UNK
  2. NIFEDIPINE [Concomitant]
  3. ONBREZ [Suspect]
     Indication: CHRONIC OBSTRUCTIVE PULMONARY DISEASE
     Dosage: 1 DF, QD
     Dates: start: 20111012, end: 20111015
  4. LOSARTAN POTASSIUM [Concomitant]
  5. INSULINE [Concomitant]
     Dosage: 20 IU, UNK

REACTIONS (5)
  - HYPERGLYCAEMIA [None]
  - DEHYDRATION [None]
  - TREMOR [None]
  - MUSCLE SPASMS [None]
  - BLOOD PRESSURE INCREASED [None]
